FAERS Safety Report 11220623 (Version 1)
Quarter: 2015Q2

REPORT INFORMATION
  Report Type: Spontaneous
  Country: TR (occurrence: TR)
  Receive Date: 20150626
  Receipt Date: 20150626
  Transmission Date: 20150821
  Serious: Yes (Life-Threatening)
  Sender: FDA-Public Use
  Company Number: TR-HOSPIRA-2908734

PATIENT
  Age: 64 Year
  Sex: Female
  Weight: 91.9 kg

DRUGS (2)
  1. CARBOPLATIN. [Suspect]
     Active Substance: CARBOPLATIN
     Indication: ENDOMETRIAL CANCER
     Route: 042
     Dates: start: 20150525, end: 20150525
  2. TAXOL [Concomitant]
     Active Substance: PACLITAXEL
     Indication: PREMEDICATION

REACTIONS (6)
  - Erythema [Recovered/Resolved]
  - Chest discomfort [Recovered/Resolved]
  - Restlessness [Recovered/Resolved]
  - Burning sensation [Recovered/Resolved]
  - Somnolence [Recovered/Resolved with Sequelae]
  - Tachycardia [Recovered/Resolved]

NARRATIVE: CASE EVENT DATE: 20150525
